FAERS Safety Report 7725048-0 (Version None)
Quarter: 2011Q3

REPORT INFORMATION
  Report Type: 
  Country: None (occurrence: None)
  Receive Date: 20110901
  Receipt Date: 20110825
  Transmission Date: 20111222
  Serious: Yes (Other)
  Sender: FDA-Public Use
  Company Number: MX-SANOFI-AVENTIS-2011SA054863

PATIENT
  Age: 67 Year
  Sex: Female

DRUGS (7)
  1. ASPIRIN [Concomitant]
     Route: 048
     Dates: start: 20100101
  2. INSULIN GLARGINE [Suspect]
     Indication: TYPE 2 DIABETES MELLITUS
     Route: 058
     Dates: start: 20080101
  3. METFORMIN [Concomitant]
     Indication: TYPE 2 DIABETES MELLITUS
     Route: 048
     Dates: start: 19950101, end: 20080101
  4. GLYBURIDE [Concomitant]
     Indication: TYPE 2 DIABETES MELLITUS
     Route: 048
     Dates: start: 19950101, end: 20080101
  5. CARVEDILOL [Concomitant]
     Dates: start: 20100101
  6. GALVUS [Concomitant]
     Indication: TYPE 2 DIABETES MELLITUS
     Route: 048
     Dates: start: 20100101
  7. IRBESARTAN AND HYDROCHLOROTHIAZIDE [Concomitant]
     Route: 048
     Dates: start: 20100101

REACTIONS (3)
  - TREMOR [None]
  - HYPERHIDROSIS [None]
  - RETINAL DETACHMENT [None]
